FAERS Safety Report 16305180 (Version 1)
Quarter: 2019Q2

REPORT INFORMATION
  Report Type: Spontaneous
  Country: FR (occurrence: FR)
  Receive Date: 20190513
  Receipt Date: 20190513
  Transmission Date: 20190711
  Serious: Yes (Hospitalization, Disabling)
  Sender: FDA-Public Use
  Company Number: FR-BAYER-2019-042786

PATIENT
  Age: 49 Year
  Sex: Female

DRUGS (2)
  1. VERAPAMIL [Concomitant]
     Active Substance: VERAPAMIL HYDROCHLORIDE
     Dosage: 40 MG, BID
     Dates: start: 2018
  2. KYLEENA [Suspect]
     Active Substance: LEVONORGESTREL
     Dosage: 17.5 MCG/24HR, CONT
     Route: 015
     Dates: start: 2019

REACTIONS (4)
  - Vaginal haemorrhage [Recovered/Resolved]
  - Dizziness [Recovered/Resolved]
  - Migraine [Recovered/Resolved]
  - Tachycardia [Recovered/Resolved]

NARRATIVE: CASE EVENT DATE: 2019
